FAERS Safety Report 6389215-3 (Version None)
Quarter: 2009Q4

REPORT INFORMATION
  Report Type: 
  Country: None (occurrence: None)
  Receive Date: 20091006
  Receipt Date: 20090923
  Transmission Date: 20100525
  Serious: Yes (Other)
  Sender: FDA-Public Use
  Company Number: PHHY2009US16772

PATIENT
  Sex: Female
  Weight: 80 kg

DRUGS (5)
  1. GLEEVEC [Suspect]
     Indication: GASTROINTESTINAL STROMAL TUMOUR
     Dosage: 400 MG DAILY
     Route: 048
     Dates: start: 20080430
  2. PAXIL [Concomitant]
     Dosage: 20 MG, QD
     Route: 048
  3. AMBIEN [Concomitant]
     Indication: INSOMNIA
     Dosage: 10 MG, QHS
  4. LASIX [Concomitant]
     Indication: OEDEMA
     Dosage: 20 MG, QD
     Route: 048
  5. B12 ^RECIP^ [Concomitant]
     Dosage: 1000 MCG MONTHLY
     Route: 030

REACTIONS (5)
  - EYE SWELLING [None]
  - JOINT SWELLING [None]
  - OEDEMA PERIPHERAL [None]
  - PERIORBITAL OEDEMA [None]
  - VISUAL ACUITY REDUCED [None]
